FAERS Safety Report 8603290-4 (Version None)
Quarter: 2012Q3

REPORT INFORMATION
  Report Type: 
  Country: None (occurrence: None)
  Receive Date: 20120817
  Receipt Date: 20120810
  Transmission Date: 20120928
  Serious: Yes (Hospitalization)
  Sender: FDA-Public Use
  Company Number: BR-ASTRAZENECA-2012SE57092

PATIENT
  Age: 64 Year
  Sex: Male
  Weight: 70 kg

DRUGS (1)
  1. CRESTOR [Suspect]
     Route: 048
     Dates: start: 20120731, end: 20120806

REACTIONS (2)
  - INTESTINAL HAEMORRHAGE [None]
  - BLOOD PRESSURE DECREASED [None]
